FAERS Safety Report 8714906 (Version 4)
Quarter: 2013Q4

REPORT INFORMATION
  Report Type: Report from Study
  Country: CA (occurrence: CA)
  Receive Date: 20120809
  Receipt Date: 20131112
  Transmission Date: 20140711
  Serious: Yes (Death)
  Sender: FDA-Public Use
  Company Number: CA-UCBSA-062999

PATIENT
  Age: 21 Year
  Sex: Male
  Weight: 137 kg

DRUGS (12)
  1. LACOSAMIDE [Suspect]
     Indication: EPILEPSY
     Route: 048
     Dates: start: 20120131, end: 20120803
  2. LACOSAMIDE [Suspect]
     Indication: EPILEPSY
     Dosage: 250MG MORNING DOSE/ 300MG EVENING DOSE
     Route: 048
     Dates: start: 20120130, end: 20120130
  3. LACOSAMIDE [Suspect]
     Indication: EPILEPSY
     Route: 048
     Dates: start: 20111116, end: 20120129
  4. LACOSAMIDE [Suspect]
     Indication: EPILEPSY
     Dosage: 200MG MORNING DOSE / 250 EVENING DOSE
     Route: 048
     Dates: start: 20111115, end: 20111115
  5. LAMOTRIGINE [Concomitant]
     Indication: EPILEPSY
     Route: 048
     Dates: start: 20120720
  6. LAMOTRIGINE [Concomitant]
     Indication: EPILEPSY
     Dosage: 100MG IN THE MORNING, 75 MG AT NIGHT
     Route: 048
     Dates: start: 20120713, end: 20120719
  7. LAMOTRIGINE [Concomitant]
     Indication: EPILEPSY
     Route: 048
     Dates: start: 20120706, end: 20120712
  8. LAMOTRIGINE [Concomitant]
     Indication: EPILEPSY
     Dosage: 50 MG IN THE MORNING, 75 MG AT NIGHT
     Route: 048
     Dates: start: 20120629, end: 20120705
  9. LAMOTRIGINE [Concomitant]
     Indication: EPILEPSY
     Route: 048
     Dates: start: 20120504, end: 20120628
  10. LAMOTRIGINE [Concomitant]
     Indication: EPILEPSY
     Dosage: 25 MG MORNING/ 50 MG NIGHT
     Route: 048
     Dates: start: 20120427, end: 20120503
  11. LAMOTRIGINE [Concomitant]
     Indication: EPILEPSY
     Route: 048
     Dates: start: 20120420, end: 20120426
  12. LAMOTRIGINE [Concomitant]
     Indication: EPILEPSY
     Route: 048
     Dates: start: 20120413, end: 20120419

REACTIONS (1)
  - Sudden unexplained death in epilepsy [Fatal]
